FAERS Safety Report 18362253 (Version 7)
Quarter: 2021Q2

REPORT INFORMATION
  Report Type: Report from Study
  Country: US (occurrence: US)
  Receive Date: 20201008
  Receipt Date: 20210526
  Transmission Date: 20210717
  Serious: Yes (Other)
  Sender: FDA-Public Use
  Company Number: NVSC2020US264625

PATIENT
  Sex: Female

DRUGS (2)
  1. ENTRESTO [Suspect]
     Active Substance: SACUBITRIL\VALSARTAN
     Indication: PRODUCT USED FOR UNKNOWN INDICATION
     Dosage: 24.26 MG, BID
     Route: 048
     Dates: start: 20200925
  2. ENTRESTO [Suspect]
     Active Substance: SACUBITRIL\VALSARTAN
     Dosage: 50 MG, TID (TAKING TWO TABS OF 24/26 IN AM (STILL ONLY TAKES ONE TAB IN PM)
     Route: 065

REACTIONS (21)
  - Throat clearing [Unknown]
  - Haemorrhage [Unknown]
  - Abnormal faeces [Unknown]
  - Gastrointestinal disorder [Unknown]
  - Blood pressure decreased [Unknown]
  - Arteriosclerosis [Unknown]
  - Thirst [Unknown]
  - Fatigue [Unknown]
  - Immunodeficiency [Unknown]
  - Sluggishness [Unknown]
  - Platelet count decreased [Unknown]
  - Cross sensitivity reaction [Unknown]
  - Feeling abnormal [Unknown]
  - Vaccination site pain [Unknown]
  - Ejection fraction decreased [Unknown]
  - White blood cell count decreased [Unknown]
  - Cardiomyopathy [Unknown]
  - Bacterial infection [Unknown]
  - Weight increased [Unknown]
  - Arthralgia [Unknown]
  - Inappropriate schedule of product administration [Unknown]
